FAERS Safety Report 10580203 (Version 1)
Quarter: 2014Q4

REPORT INFORMATION
  Report Type: Spontaneous
  Country: US (occurrence: US)
  Receive Date: 20141112
  Receipt Date: 20141112
  Transmission Date: 20150529
  Serious: Yes (Other)
  Sender: FDA-Public Use
  Company Number: US-ROCHE-1488184

PATIENT
  Age: 55 Year
  Sex: Female

DRUGS (1)
  1. KADCYLA [Suspect]
     Active Substance: ADO-TRASTUZUMAB EMTANSINE
     Indication: HER-2 POSITIVE BREAST CANCER
     Route: 041
     Dates: start: 20140102

REACTIONS (2)
  - Injury [Not Recovered/Not Resolved]
  - Extravasation [Unknown]

NARRATIVE: CASE EVENT DATE: 20140825
